FAERS Safety Report 5321531-6 (Version None)
Quarter: 2007Q1

REPORT INFORMATION
  Report Type: 
  Country: None (occurrence: None)
  Receive Date: 20070215
  Receipt Date: 20061002
  Transmission Date: 20070707
  Serious: No
  Sender: FDA-Public Use
  Company Number: 200615948BWH

PATIENT
  Age: 83 Year
  Sex: Male

DRUGS (4)
  1. NEXAVAR [Suspect]
     Indication: METASTATIC MALIGNANT MELANOMA
     Dosage: 200 MG, BID, ORAL
     Route: 048
     Dates: start: 20060930
  2. TEMODAR [Suspect]
     Indication: METASTATIC MALIGNANT MELANOMA
  3. NORVASC [Concomitant]
  4. MICARDIS HCT [Concomitant]

REACTIONS (11)
  - APHASIA [None]
  - APHONIA [None]
  - BLOOD PRESSURE INCREASED [None]
  - CONSTIPATION [None]
  - COUGH [None]
  - DYSPHONIA [None]
  - ERYTHEMA [None]
  - FATIGUE [None]
  - MUSCULOSKELETAL STIFFNESS [None]
  - NAUSEA [None]
  - TOOTHACHE [None]
